FAERS Safety Report 9856959 (Version 1)
Quarter: 2014Q1

REPORT INFORMATION
  Report Type: Spontaneous
  Country: NL (occurrence: NL)
  Receive Date: 20140130
  Receipt Date: 20140130
  Transmission Date: 20141002
  Serious: No
  Sender: FDA-Public Use
  Company Number: NL-JNJFOC-20140113128

PATIENT
  Sex: Female

DRUGS (80)
  1. RISPERIDONE [Suspect]
     Indication: PERSONALITY DISORDER
     Route: 065
  2. RISPERIDONE [Suspect]
     Indication: PSYCHOTIC DISORDER
     Route: 065
  3. RISPERIDONE [Suspect]
     Indication: ANXIETY DISORDER
     Route: 065
  4. RISPERIDONE [Suspect]
     Indication: AFFECTIVE DISORDER
     Route: 065
  5. HALOPERIDOL [Suspect]
     Indication: PERSONALITY DISORDER
     Route: 065
  6. HALOPERIDOL [Suspect]
     Indication: PSYCHOTIC DISORDER
     Route: 065
  7. HALOPERIDOL [Suspect]
     Indication: ANXIETY DISORDER
     Route: 065
  8. HALOPERIDOL [Suspect]
     Indication: AFFECTIVE DISORDER
     Route: 065
  9. PIPAMPERON [Suspect]
     Indication: PERSONALITY DISORDER
     Route: 065
  10. PIPAMPERON [Suspect]
     Indication: PSYCHOTIC DISORDER
     Route: 065
  11. PIPAMPERON [Suspect]
     Indication: ANXIETY DISORDER
     Route: 065
  12. PIPAMPERON [Suspect]
     Indication: AFFECTIVE DISORDER
     Route: 065
  13. CITALOPRAM [Suspect]
     Indication: PERSONALITY DISORDER
     Route: 065
  14. CITALOPRAM [Suspect]
     Indication: PSYCHOTIC DISORDER
     Route: 065
  15. CITALOPRAM [Suspect]
     Indication: ANXIETY DISORDER
     Route: 065
  16. CITALOPRAM [Suspect]
     Indication: AFFECTIVE DISORDER
     Route: 065
  17. PAROXETINE [Suspect]
     Indication: PERSONALITY DISORDER
     Route: 065
  18. PAROXETINE [Suspect]
     Indication: PSYCHOTIC DISORDER
     Route: 065
  19. PAROXETINE [Suspect]
     Indication: ANXIETY DISORDER
     Route: 065
  20. PAROXETINE [Suspect]
     Indication: AFFECTIVE DISORDER
     Route: 065
  21. FLUVOXAMINE [Suspect]
     Indication: PERSONALITY DISORDER
     Route: 065
  22. FLUVOXAMINE [Suspect]
     Indication: PSYCHOTIC DISORDER
     Route: 065
  23. FLUVOXAMINE [Suspect]
     Indication: ANXIETY DISORDER
     Route: 065
  24. FLUVOXAMINE [Suspect]
     Indication: AFFECTIVE DISORDER
     Route: 065
  25. FLUOXETINE [Suspect]
     Indication: PERSONALITY DISORDER
     Route: 065
  26. FLUOXETINE [Suspect]
     Indication: PSYCHOTIC DISORDER
     Route: 065
  27. FLUOXETINE [Suspect]
     Indication: ANXIETY DISORDER
     Route: 065
  28. FLUOXETINE [Suspect]
     Indication: AFFECTIVE DISORDER
     Route: 065
  29. ESCITALOPRAM [Suspect]
     Indication: PERSONALITY DISORDER
     Route: 065
  30. ESCITALOPRAM [Suspect]
     Indication: PSYCHOTIC DISORDER
     Route: 065
  31. ESCITALOPRAM [Suspect]
     Indication: ANXIETY DISORDER
     Route: 065
  32. ESCITALOPRAM [Suspect]
     Indication: AFFECTIVE DISORDER
     Route: 065
  33. SERTRALINE [Suspect]
     Indication: PERSONALITY DISORDER
     Route: 065
  34. SERTRALINE [Suspect]
     Indication: PSYCHOTIC DISORDER
     Route: 065
  35. SERTRALINE [Suspect]
     Indication: ANXIETY DISORDER
     Route: 065
  36. SERTRALINE [Suspect]
     Indication: AFFECTIVE DISORDER
     Route: 065
  37. VENLAFAXINE [Suspect]
     Indication: PERSONALITY DISORDER
     Route: 065
  38. VENLAFAXINE [Suspect]
     Indication: PSYCHOTIC DISORDER
     Route: 065
  39. VENLAFAXINE [Suspect]
     Indication: ANXIETY DISORDER
     Route: 065
  40. VENLAFAXINE [Suspect]
     Indication: AFFECTIVE DISORDER
     Route: 065
  41. MIRTAZAPINE [Suspect]
     Indication: PERSONALITY DISORDER
     Route: 065
  42. MIRTAZAPINE [Suspect]
     Indication: PSYCHOTIC DISORDER
     Route: 065
  43. MIRTAZAPINE [Suspect]
     Indication: ANXIETY DISORDER
     Route: 065
  44. MIRTAZAPINE [Suspect]
     Indication: AFFECTIVE DISORDER
     Route: 065
  45. CLOMIPRAMINE [Suspect]
     Indication: PERSONALITY DISORDER
     Route: 065
  46. CLOMIPRAMINE [Suspect]
     Indication: PSYCHOTIC DISORDER
     Route: 065
  47. CLOMIPRAMINE [Suspect]
     Indication: ANXIETY DISORDER
     Route: 065
  48. CLOMIPRAMINE [Suspect]
     Indication: AFFECTIVE DISORDER
     Route: 065
  49. AMITRIPTYLINE [Suspect]
     Indication: PERSONALITY DISORDER
     Route: 065
  50. AMITRIPTYLINE [Suspect]
     Indication: PSYCHOTIC DISORDER
     Route: 065
  51. AMITRIPTYLINE [Suspect]
     Indication: ANXIETY DISORDER
     Route: 065
  52. AMITRIPTYLINE [Suspect]
     Indication: AFFECTIVE DISORDER
     Route: 065
  53. BUPROPION [Suspect]
     Indication: PERSONALITY DISORDER
     Route: 065
  54. BUPROPION [Suspect]
     Indication: PSYCHOTIC DISORDER
     Route: 065
  55. BUPROPION [Suspect]
     Indication: ANXIETY DISORDER
     Route: 065
  56. BUPROPION [Suspect]
     Indication: AFFECTIVE DISORDER
     Route: 065
  57. QUETIAPINE [Suspect]
     Indication: PERSONALITY DISORDER
     Route: 065
  58. QUETIAPINE [Suspect]
     Indication: PSYCHOTIC DISORDER
     Route: 065
  59. QUETIAPINE [Suspect]
     Indication: ANXIETY DISORDER
     Route: 065
  60. QUETIAPINE [Suspect]
     Indication: AFFECTIVE DISORDER
     Route: 065
  61. OLANZAPINE [Suspect]
     Indication: PERSONALITY DISORDER
     Route: 065
  62. OLANZAPINE [Suspect]
     Indication: PSYCHOTIC DISORDER
     Route: 065
  63. OLANZAPINE [Suspect]
     Indication: ANXIETY DISORDER
     Route: 065
  64. OLANZAPINE [Suspect]
     Indication: AFFECTIVE DISORDER
     Route: 065
  65. ARIPIPRAZOLE [Suspect]
     Indication: PERSONALITY DISORDER
     Route: 065
  66. ARIPIPRAZOLE [Suspect]
     Indication: PSYCHOTIC DISORDER
     Route: 065
  67. ARIPIPRAZOLE [Suspect]
     Indication: ANXIETY DISORDER
     Route: 065
  68. ARIPIPRAZOLE [Suspect]
     Indication: AFFECTIVE DISORDER
     Route: 065
  69. LITHIUM [Suspect]
     Indication: PERSONALITY DISORDER
     Route: 065
  70. LITHIUM [Suspect]
     Indication: PSYCHOTIC DISORDER
     Route: 065
  71. LITHIUM [Suspect]
     Indication: ANXIETY DISORDER
     Route: 065
  72. LITHIUM [Suspect]
     Indication: AFFECTIVE DISORDER
     Route: 065
  73. VALPROIC ACID [Suspect]
     Indication: PERSONALITY DISORDER
     Route: 065
  74. VALPROIC ACID [Suspect]
     Indication: PSYCHOTIC DISORDER
     Route: 065
  75. VALPROIC ACID [Suspect]
     Indication: ANXIETY DISORDER
     Route: 065
  76. VALPROIC ACID [Suspect]
     Indication: AFFECTIVE DISORDER
     Route: 065
  77. LEVOTHYROXINE [Concomitant]
     Route: 065
  78. BIPERIDEN [Concomitant]
     Route: 065
  79. INSULIN [Concomitant]
     Route: 065
  80. DEXAMETHASONE [Concomitant]
     Route: 065

REACTIONS (1)
  - Exposure during pregnancy [Unknown]
